FAERS Safety Report 21810077 (Version 2)
Quarter: 2023Q1

REPORT INFORMATION
  Report Type: Spontaneous
  Country: US (occurrence: US)
  Receive Date: 20230103
  Receipt Date: 20230116
  Transmission Date: 20230418
  Serious: Yes (Hospitalization, Other)
  Sender: FDA-Public Use
  Company Number: US-Accord-294122

PATIENT
  Age: 67 Year
  Sex: Female

DRUGS (10)
  1. TACROLIMUS [Interacting]
     Active Substance: TACROLIMUS
     Indication: Immunosuppression
     Dosage: 3 MG EVERY MORNING AND 2 MG EVERY EVENING
  2. NIRMATRELVIR\RITONAVIR [Interacting]
     Active Substance: NIRMATRELVIR\RITONAVIR
     Indication: COVID-19
  3. AZATHIOPRINE [Concomitant]
     Active Substance: AZATHIOPRINE
     Indication: Immunosuppressant drug therapy
  4. TEMAZEPAM [Concomitant]
     Active Substance: TEMAZEPAM
  5. HYDROCHLOROTHIAZIDE [Concomitant]
     Active Substance: HYDROCHLOROTHIAZIDE
  6. LOSARTAN [Concomitant]
     Active Substance: LOSARTAN
  7. LEVOTHYROXINE [Concomitant]
     Active Substance: LEVOTHYROXINE
  8. PRAVASTATIN [Concomitant]
     Active Substance: PRAVASTATIN
  9. CARVEDILOL [Concomitant]
     Active Substance: CARVEDILOL
  10. ATROPINE SULFATE\DIPHENOXYLATE [Concomitant]
     Active Substance: ATROPINE SULFATE\DIPHENOXYLATE

REACTIONS (6)
  - Drug interaction [Unknown]
  - Acute kidney injury [Recovered/Resolved]
  - Drug level increased [Recovered/Resolved]
  - Metabolic encephalopathy [Recovered/Resolved]
  - Toxicity to various agents [Unknown]
  - Azotaemia [Recovered/Resolved]
